FAERS Safety Report 11860455 (Version 2)
Quarter: 2016Q2

REPORT INFORMATION
  Report Type: Spontaneous
  Country: CA (occurrence: CA)
  Receive Date: 20151222
  Receipt Date: 20160429
  Transmission Date: 20160815
  Serious: Yes (Other)
  Sender: FDA-Public Use
  Company Number: CA-GILEAD-2015-0187572

PATIENT
  Age: 46 Year
  Sex: Male
  Weight: 73 kg

DRUGS (4)
  1. IBAVYR [Suspect]
     Active Substance: RIBAVIRIN
     Indication: HEPATITIS C
     Dosage: 1000 MG, QD
     Route: 048
  2. ZOPICLONE [Suspect]
     Active Substance: ZOPICLONE
     Indication: INSOMNIA
     Dosage: 3.25 MG, Q1HR
     Route: 048
  3. SOVALDI [Suspect]
     Active Substance: SOFOSBUVIR
     Indication: HEPATITIS C
     Dosage: 400 MG, UNK
     Route: 048
  4. SIMEPREVIR [Suspect]
     Active Substance: SIMEPREVIR
     Indication: HEPATITIS C
     Dosage: 400 MG, UNK
     Route: 048

REACTIONS (14)
  - Personality change [Unknown]
  - Irritability [Unknown]
  - Dry mouth [Unknown]
  - Mental status changes [Unknown]
  - Thirst [Unknown]
  - Anxiety [Unknown]
  - Irritable bowel syndrome [Unknown]
  - Eczema [Unknown]
  - Fatigue [Unknown]
  - Insomnia [Unknown]
  - Rectal haemorrhage [Unknown]
  - Agitation [Unknown]
  - Disturbance in attention [Unknown]
  - Haemorrhoids [Unknown]
